FAERS Safety Report 8308411-9 (Version None)
Quarter: 2012Q2

REPORT INFORMATION
  Report Type: 
  Country: None (occurrence: None)
  Receive Date: 20120424
  Receipt Date: 20120413
  Transmission Date: 20120825
  Serious: Yes (Hospitalization, Disabling)
  Sender: FDA-Public Use
  Company Number: US-MERCK-1203USA04538

PATIENT
  Age: 5 Year
  Sex: Male
  Weight: 20 kg

DRUGS (1)
  1. SINGULAIR [Suspect]
     Indication: ASTHMA EXERCISE INDUCED
     Route: 048
     Dates: start: 20120301, end: 20120321

REACTIONS (8)
  - ARTHROPOD BITE [None]
  - RASH [None]
  - MUSCLE SPASMS [None]
  - EXCESSIVE EYE BLINKING [None]
  - TOURETTE'S DISORDER [None]
  - TIC [None]
  - CONVULSION [None]
  - PYREXIA [None]
